FAERS Safety Report 6600710-1 (Version None)
Quarter: 2010Q1

REPORT INFORMATION
  Report Type: 
  Country: None (occurrence: None)
  Receive Date: 20100223
  Receipt Date: 20100223
  Transmission Date: 20100710
  Serious: Yes (Life-Threatening)
  Sender: FDA-Public Use
  Company Number: None

PATIENT
  Sex: Male
  Weight: 86.1834 kg

DRUGS (1)
  1. CLOZAPINE [Suspect]
     Indication: SCHIZOPHRENIA
     Dosage: 2X 25MG ONCE/NIGHT ORAL 3 DAYS (25,50,75) 3 DAYS (50,50,50)
     Route: 048

REACTIONS (3)
  - COMMUNICATION DISORDER [None]
  - CONVULSION [None]
  - GASTROINTESTINAL VIRAL INFECTION [None]
